FAERS Safety Report 5412433-5 (Version None)
Quarter: 2007Q3

REPORT INFORMATION
  Report Type: 
  Country: None (occurrence: None)
  Receive Date: 20070813
  Receipt Date: 20070806
  Transmission Date: 20080115
  Serious: Yes (Death, Hospitalization)
  Sender: FDA-Public Use
  Company Number: JP-ASTRAZENECA-2007SE03739

PATIENT
  Age: 21212 Day
  Sex: Male
  Weight: 75 kg

DRUGS (8)
  1. CANDESARTAN CILEXETIL [Suspect]
     Indication: HYPERTENSION
     Route: 048
     Dates: start: 20070601, end: 20070608
  2. NEUROTROPIN [Concomitant]
     Indication: HEADACHE
     Route: 048
     Dates: start: 20070601
  3. ASPIRIN [Concomitant]
     Route: 048
     Dates: end: 20070610
  4. EXCEMIDE [Concomitant]
     Route: 048
     Dates: end: 20070610
  5. JU-KAMA [Concomitant]
     Route: 048
     Dates: end: 20070610
  6. DEPAKENE [Concomitant]
     Route: 048
     Dates: end: 20070610
  7. THYRADIN S [Concomitant]
     Dosage: 150 MCG (MORNING 100 MCG, EVENING 50 MCG)
     Route: 048
     Dates: end: 20070610
  8. PHENOBARBITAL TAB [Concomitant]
     Route: 048
     Dates: end: 20070610

REACTIONS (1)
  - INTERSTITIAL LUNG DISEASE [None]
